FAERS Safety Report 10076637 (Version 1)
Quarter: 2014Q2

REPORT INFORMATION
  Report Type: Spontaneous
  Country: US (occurrence: US)
  Receive Date: 20140414
  Receipt Date: 20140414
  Transmission Date: 20141212
  Serious: Yes (Other)
  Sender: FDA-Public Use
  Company Number: US-PFIZER INC-2014103769

PATIENT
  Age: 58 Year
  Sex: Male
  Weight: 88.44 kg

DRUGS (1)
  1. LYRICA [Suspect]
     Indication: NEURALGIA
     Dosage: 50 MG, DAILY
     Dates: start: 20140408

REACTIONS (3)
  - Renal failure [Unknown]
  - Pain in extremity [Unknown]
  - Pain [Not Recovered/Not Resolved]
